FAERS Safety Report 12634018 (Version 4)
Quarter: 2016Q4

REPORT INFORMATION
  Report Type: Spontaneous
  Country: JP (occurrence: JP)
  Receive Date: 20160808
  Receipt Date: 20161220
  Transmission Date: 20170207
  Serious: Yes (Hospitalization, Other)
  Sender: FDA-Public Use
  Company Number: JP-BAYER-2016-151939

PATIENT
  Age: 75 Year
  Sex: Male

DRUGS (1)
  1. NEXAVAR [Suspect]
     Active Substance: SORAFENIB
     Indication: HEPATOCELLULAR CARCINOMA
     Dosage: DAILY DOSE 800 MG
     Route: 048

REACTIONS (12)
  - Decreased appetite [None]
  - Malaise [None]
  - Nausea [None]
  - Duodenal ulcer [None]
  - Duodenal ulcer haemorrhage [None]
  - Tumour lysis syndrome [None]
  - Pyrexia [None]
  - Vomiting [None]
  - Hepatic enzyme increased [None]
  - Gastric ulcer [None]
  - Faeces discoloured [None]
  - Anaemia [None]
